FAERS Safety Report 5072175-5 (Version None)
Quarter: 2006Q3

REPORT INFORMATION
  Report Type: 
  Country: None (occurrence: None)
  Receive Date: 20060801
  Receipt Date: 20060719
  Transmission Date: 20061208
  Serious: Yes (Hospitalization, Other)
  Sender: FDA-Public Use
  Company Number: 2006090132

PATIENT
  Age: 61 Year
  Sex: Female
  Weight: 68.0396 kg

DRUGS (2)
  1. GABAPENTIN               C (GABAPENTIN) [Suspect]
     Indication: COMPLEX REGIONAL PAIN SYNDROME
     Dosage: 1200 MG (600 MG, 2 IN 1 D),
  2. DARVOCET [Concomitant]

REACTIONS (9)
  - ASPIRATION [None]
  - CARDIAC DISORDER [None]
  - COMPLEX REGIONAL PAIN SYNDROME [None]
  - CONDITION AGGRAVATED [None]
  - DYSPNOEA [None]
  - FALL [None]
  - FOOT FRACTURE [None]
  - NAUSEA [None]
  - VOMITING [None]
